FAERS Safety Report 24217485 (Version 1)
Quarter: 2024Q3

REPORT INFORMATION
  Report Type: Spontaneous
  Country: US (occurrence: US)
  Receive Date: 20240816
  Receipt Date: 20240816
  Transmission Date: 20241017
  Serious: Yes (Hospitalization, Other)
  Sender: APOTEX
  Company Number: US-APOTEX-2024AP009162

PATIENT
  Age: 49 Year
  Sex: Female

DRUGS (4)
  1. ZOLPIDEM [Suspect]
     Active Substance: ZOLPIDEM TARTRATE
     Indication: Product used for unknown indication
     Dosage: 6 DOSAGE FORM
     Route: 048
  2. ACETAMINOPHEN\OXYCODONE HYDROCHLORIDE [Suspect]
     Active Substance: ACETAMINOPHEN\OXYCODONE HYDROCHLORIDE
     Indication: Product used for unknown indication
     Dosage: A WHOLE BOTTLE
     Route: 048
  3. OXYCONTIN [Suspect]
     Active Substance: OXYCODONE HYDROCHLORIDE
     Indication: Product used for unknown indication
     Dosage: 20 DOSAGE FORM
     Route: 048
  4. HYDROCHLOROTHIAZIDE [Suspect]
     Active Substance: HYDROCHLOROTHIAZIDE
     Indication: Product used for unknown indication
     Dosage: 2 DOSAGE FORM
     Route: 048

REACTIONS (16)
  - Suicide attempt [Unknown]
  - Acute respiratory failure [Recovering/Resolving]
  - Septic shock [Unknown]
  - Pneumonia aspiration [Unknown]
  - Multiple organ dysfunction syndrome [Unknown]
  - Hepatic failure [Unknown]
  - Renal failure [Unknown]
  - Myocardial ischaemia [Unknown]
  - Disseminated intravascular coagulation [Unknown]
  - Hypertensive crisis [Unknown]
  - Choroidal infarction [Recovering/Resolving]
  - Acute kidney injury [Unknown]
  - Tachycardia [Unknown]
  - Pyrexia [Unknown]
  - Hypotension [Unknown]
  - Overdose [Unknown]
